FAERS Safety Report 25219299 (Version 1)
Quarter: 2025Q2

REPORT INFORMATION
  Report Type: Spontaneous
  Country: FR (occurrence: FR)
  Receive Date: 20250421
  Receipt Date: 20250421
  Transmission Date: 20250717
  Serious: Yes (Other)
  Sender: MYLAN
  Company Number: None

PATIENT
  Age: 70 Year
  Sex: Male

DRUGS (16)
  1. ACETAMINOPHEN [Suspect]
     Active Substance: ACETAMINOPHEN
     Indication: Pain
     Dosage: 1500 MILLIGRAM, QD
     Dates: start: 20250310, end: 20250315
  2. ACETAMINOPHEN [Suspect]
     Active Substance: ACETAMINOPHEN
     Dosage: 1500 MILLIGRAM, QD
     Route: 048
     Dates: start: 20250310, end: 20250315
  3. ACETAMINOPHEN [Suspect]
     Active Substance: ACETAMINOPHEN
     Dosage: 1500 MILLIGRAM, QD
     Route: 048
     Dates: start: 20250310, end: 20250315
  4. ACETAMINOPHEN [Suspect]
     Active Substance: ACETAMINOPHEN
     Dosage: 1500 MILLIGRAM, QD
     Dates: start: 20250310, end: 20250315
  5. ACETAMINOPHEN\OPIUM [Suspect]
     Active Substance: ACETAMINOPHEN\OPIUM
     Indication: Pain
     Dosage: 3 DOSAGE FORM, QD
     Dates: start: 20250310, end: 20250314
  6. ACETAMINOPHEN\OPIUM [Suspect]
     Active Substance: ACETAMINOPHEN\OPIUM
     Dosage: 3 DOSAGE FORM, QD
     Route: 048
     Dates: start: 20250310, end: 20250314
  7. ACETAMINOPHEN\OPIUM [Suspect]
     Active Substance: ACETAMINOPHEN\OPIUM
     Dosage: 3 DOSAGE FORM, QD
     Route: 048
     Dates: start: 20250310, end: 20250314
  8. ACETAMINOPHEN\OPIUM [Suspect]
     Active Substance: ACETAMINOPHEN\OPIUM
     Dosage: 3 DOSAGE FORM, QD
     Dates: start: 20250310, end: 20250314
  9. KETOPROFEN [Suspect]
     Active Substance: KETOPROFEN
     Indication: Pain
     Dosage: 1 DOSAGE FORM, QD
     Dates: start: 20250310, end: 20250315
  10. KETOPROFEN [Suspect]
     Active Substance: KETOPROFEN
     Dosage: 1 DOSAGE FORM, QD
     Route: 048
     Dates: start: 20250310, end: 20250315
  11. KETOPROFEN [Suspect]
     Active Substance: KETOPROFEN
     Dosage: 1 DOSAGE FORM, QD
     Route: 048
     Dates: start: 20250310, end: 20250315
  12. KETOPROFEN [Suspect]
     Active Substance: KETOPROFEN
     Dosage: 1 DOSAGE FORM, QD
     Dates: start: 20250310, end: 20250315
  13. PANTOPRAZOLE [Suspect]
     Active Substance: PANTOPRAZOLE
     Indication: Prophylaxis
     Dosage: 1 DOSAGE FORM, QD
     Dates: start: 20250310, end: 20250318
  14. PANTOPRAZOLE [Suspect]
     Active Substance: PANTOPRAZOLE
     Dosage: 1 DOSAGE FORM, QD
     Route: 048
     Dates: start: 20250310, end: 20250318
  15. PANTOPRAZOLE [Suspect]
     Active Substance: PANTOPRAZOLE
     Dosage: 1 DOSAGE FORM, QD
     Route: 048
     Dates: start: 20250310, end: 20250318
  16. PANTOPRAZOLE [Suspect]
     Active Substance: PANTOPRAZOLE
     Dosage: 1 DOSAGE FORM, QD
     Dates: start: 20250310, end: 20250318

REACTIONS (1)
  - Mixed liver injury [Recovering/Resolving]

NARRATIVE: CASE EVENT DATE: 20250315
